FAERS Safety Report 6525772-1 (Version None)
Quarter: 2010Q1

REPORT INFORMATION
  Report Type: 
  Country: None (occurrence: None)
  Receive Date: 20100104
  Receipt Date: 20090219
  Transmission Date: 20100710
  Serious: Yes (Disabling, Other)
  Sender: FDA-Public Use
  Company Number: US-BAYER-200835106NA

PATIENT
  Age: 55 Year
  Sex: Female
  Weight: 50 kg

DRUGS (16)
  1. MAGNEVIST [Suspect]
     Indication: NUCLEAR MAGNETIC RESONANCE IMAGING BRAIN
     Dates: start: 20070801, end: 20070801
  2. OMNISCAN [Suspect]
     Indication: NUCLEAR MAGNETIC RESONANCE IMAGING BRAIN
     Dosage: TOTAL DAILY DOSE: 20 ML
     Dates: start: 20041221, end: 20041221
  3. OMNISCAN [Suspect]
     Dosage: TOTAL DAILY DOSE: 20 ML
     Dates: start: 20050214, end: 20050214
  4. OMNISCAN [Suspect]
     Dosage: TOTAL DAILY DOSE: 20 ML
     Dates: start: 20060619, end: 20060619
  5. OPTIMARK [Suspect]
     Indication: NUCLEAR MAGNETIC RESONANCE IMAGING
  6. INSULIN [Concomitant]
  7. PREDNISONE [Concomitant]
     Indication: PROPHYLAXIS AGAINST TRANSPLANT REJECTION
     Dosage: TOTAL DAILY DOSE: 5 MG
     Dates: start: 20071201
  8. EPOGEN [Concomitant]
     Indication: PROPHYLAXIS AGAINST TRANSPLANT REJECTION
  9. IRON INJECTION [Concomitant]
  10. CYCLOSPORINE [Concomitant]
     Indication: PROPHYLAXIS AGAINST TRANSPLANT REJECTION
  11. PREDNISONE [Concomitant]
  12. AMIODARONE HCL [Concomitant]
  13. CARNITOR [Concomitant]
     Dates: start: 20050601
  14. RENAGEL [Concomitant]
     Dosage: DOSE: 5 TABS
  15. NEURONTIN [Concomitant]
  16. ISOVUE-128 [Concomitant]
     Indication: ANGIOGRAM
     Dosage: TOTAL DAILY DOSE: 45 MOL
     Dates: start: 20041022, end: 20041022

REACTIONS (17)
  - ABDOMINAL DISCOMFORT [None]
  - ANXIETY [None]
  - BACK PAIN [None]
  - EMOTIONAL DISTRESS [None]
  - FIBROSIS [None]
  - GENERAL PHYSICAL HEALTH DETERIORATION [None]
  - INJURY [None]
  - JOINT RANGE OF MOTION DECREASED [None]
  - MUSCULOSKELETAL CHEST PAIN [None]
  - NEPHROGENIC SYSTEMIC FIBROSIS [None]
  - PAIN [None]
  - RASH [None]
  - SCAR [None]
  - SKIN HYPERTROPHY [None]
  - SKIN INDURATION [None]
  - SKIN SWELLING [None]
  - SKIN TIGHTNESS [None]
